FAERS Safety Report 25829153 (Version 2)
Quarter: 2025Q4

REPORT INFORMATION
  Report Type: Spontaneous
  Country: CA (occurrence: CA)
  Receive Date: 20250922
  Receipt Date: 20251117
  Transmission Date: 20260117
  Serious: Yes (Other)
  Sender: CELLTRION
  Company Number: CA-PFIZER INC-202500181433

PATIENT

DRUGS (2)
  1. INFLECTRA [Suspect]
     Active Substance: INFLIXIMAB-DYYB
     Indication: Ankylosing spondylitis
     Dosage: 500 MG EVERY 5 WEEK
     Route: 042
     Dates: start: 20230720
  2. INFLECTRA [Suspect]
     Active Substance: INFLIXIMAB-DYYB
     Dosage: 500 MG EVERY 5 WEEK
     Route: 042
     Dates: start: 20250717

REACTIONS (8)
  - Metabolic dysfunction-associated liver disease [Unknown]
  - Hepatic cirrhosis [Unknown]
  - Condition aggravated [Unknown]
  - Paraesthesia [Unknown]
  - Constipation [Unknown]
  - Dyspnoea [Not Recovered/Not Resolved]
  - Heart rate decreased [Unknown]
  - Sinus bradycardia [Unknown]
